FAERS Safety Report 20567363 (Version 1)
Quarter: 2022Q1

REPORT INFORMATION
  Report Type: Spontaneous
  Country: FR (occurrence: FR)
  Receive Date: 20220308
  Receipt Date: 20220308
  Transmission Date: 20220423
  Serious: Yes (Hospitalization)
  Sender: FDA-Public Use
  Company Number: None

PATIENT
  Age: 63 Year
  Sex: Male

DRUGS (1)
  1. KEYTRUDA [Suspect]
     Active Substance: PEMBROLIZUMAB
     Indication: Non-small cell lung cancer metastatic
     Dosage: NR
     Route: 042
     Dates: start: 20220104, end: 20220104

REACTIONS (2)
  - Eczema [Not Recovered/Not Resolved]
  - Immune-mediated hyperthyroidism [Recovering/Resolving]

NARRATIVE: CASE EVENT DATE: 20220101
